FAERS Safety Report 8495721-8 (Version None)
Quarter: 2012Q3

REPORT INFORMATION
  Report Type: 
  Country: None (occurrence: None)
  Receive Date: 20120709
  Receipt Date: 20120706
  Transmission Date: 20120928
  Serious: No
  Sender: FDA-Public Use
  Company Number: US-PFIZER INC-2012162660

PATIENT
  Sex: Male
  Weight: 88 kg

DRUGS (9)
  1. LISINOPRIL [Concomitant]
     Indication: HYPERTENSION
     Dosage: 40 MG, DAILY
  2. ZOLOFT [Suspect]
     Indication: DEPRESSION
     Dosage: 100 MG, DAILY
     Dates: start: 20120101
  3. HYDROCHLOROTHIAZIDE [Concomitant]
     Indication: HYPERTENSION
     Dosage: 12.5 MG, DAILY
  4. SPIRIVA [Concomitant]
     Dosage: UNK,DAILY
  5. PRISTIQ [Suspect]
     Indication: DEPRESSION
     Dosage: 50 MG, DAILY
     Dates: start: 20110620
  6. TRAZODONE [Concomitant]
     Dosage: 75 MG, DAILY
  7. PRISTIQ [Suspect]
     Dosage: 100 MG, DAILY
     Dates: end: 20120101
  8. RANITIDINE [Concomitant]
     Dosage: 300 MG, DAILY
  9. FLUTICASONE [Concomitant]
     Dosage: UNK, 2X/DAY

REACTIONS (1)
  - DRUG INEFFECTIVE [None]
